FAERS Safety Report 6393817-8 (Version None)
Quarter: 2009Q4

REPORT INFORMATION
  Report Type: 
  Country: None (occurrence: None)
  Receive Date: 20091008
  Receipt Date: 20090926
  Transmission Date: 20100525
  Serious: Yes (Other)
  Sender: FDA-Public Use
  Company Number: US-PFIZER INC-2009278850

PATIENT
  Sex: Female
  Weight: 81.646 kg

DRUGS (2)
  1. CHANTIX [Suspect]
     Indication: SMOKING CESSATION THERAPY
     Dosage: FREQUENCY: 2X/DAY,
     Route: 048
     Dates: start: 20090912, end: 20090925
  2. IBUPROFEN [Concomitant]

REACTIONS (6)
  - AGGRESSION [None]
  - ANGER [None]
  - FEELING ABNORMAL [None]
  - HOSTILITY [None]
  - SUICIDAL IDEATION [None]
  - VIOLENCE-RELATED SYMPTOM [None]
